FAERS Safety Report 18194952 (Version 2)
Quarter: 2022Q3

REPORT INFORMATION
  Report Type: Spontaneous
  Country: SI (occurrence: SI)
  Receive Date: 20200825
  Receipt Date: 20220816
  Transmission Date: 20221027
  Serious: No
  Sender: FDA-Public Use
  Company Number: SI-NOVARTISPH-NVSC2020SI234413

PATIENT
  Age: 21 Year
  Sex: Female
  Weight: 146 kg

DRUGS (5)
  1. ARGATROBAN [Suspect]
     Active Substance: ARGATROBAN
     Indication: Heparin-induced thrombocytopenia
     Dosage: UNK
     Route: 065
  2. DALTEPARIN SODIUM [Suspect]
     Active Substance: DALTEPARIN SODIUM
     Indication: Venous thrombosis in pregnancy
     Dosage: 15000 IU, BID (PEAK-XA EUAL TO 0.87 IU/ML)
     Route: 065
  3. FONDAPARINUX [Suspect]
     Active Substance: FONDAPARINUX
     Indication: Venous thrombosis in pregnancy
     Dosage: 12.5 MG, QD (ANTI-XA EQUAL TO 1.24 MG/ML)
     Route: 065
  4. WARFARIN [Suspect]
     Active Substance: WARFARIN
     Indication: Venous thrombosis in pregnancy
     Dosage: 33 MG, QW
     Route: 065
  5. WARFARIN POTASSIUM [Suspect]
     Active Substance: WARFARIN POTASSIUM
     Indication: Venous thrombosis in pregnancy
     Dosage: UNK
     Route: 065

REACTIONS (3)
  - Maternal exposure during pregnancy [Unknown]
  - No adverse event [Unknown]
  - Normal newborn [Unknown]
